FAERS Safety Report 14333787 (Version 1)
Quarter: 2017Q4

REPORT INFORMATION
  Report Type: Spontaneous
  Country: US (occurrence: US)
  Receive Date: 20171227
  Receipt Date: 20171227
  Transmission Date: 20180321
  Serious: Yes (Hospitalization)
  Sender: FDA-Public Use
  Company Number: None

PATIENT
  Age: 15 Year
  Sex: Female
  Weight: 29.48 kg

DRUGS (1)
  1. JADENU [Suspect]
     Active Substance: DEFERASIROX
     Indication: SICKLE CELL ANAEMIA
     Dosage: 360MG
     Route: 048
     Dates: start: 201601

REACTIONS (2)
  - Urinary tract infection [None]
  - Nephrolithiasis [None]

NARRATIVE: CASE EVENT DATE: 20170805
